FAERS Safety Report 12369853 (Version 1)
Quarter: 2016Q2

REPORT INFORMATION
  Report Type: Spontaneous
  Country: US (occurrence: US)
  Receive Date: 20160516
  Receipt Date: 20160516
  Transmission Date: 20160815
  Serious: Yes (Other)
  Sender: FDA-Public Use
  Company Number: US-BRISTOL-MYERS SQUIBB COMPANY-BMS-2016-035855

PATIENT
  Sex: Male

DRUGS (1)
  1. YERVOY [Suspect]
     Active Substance: IPILIMUMAB
     Indication: MALIGNANT MELANOMA
     Dosage: 10 MG/KG, UNK
     Route: 042

REACTIONS (10)
  - Decreased appetite [Unknown]
  - Fatigue [Unknown]
  - Dysstasia [Unknown]
  - Nasopharyngitis [Unknown]
  - Vomiting [Unknown]
  - Malaise [Unknown]
  - Insomnia [Unknown]
  - Pruritus [Unknown]
  - Lethargy [Unknown]
  - Diarrhoea [Unknown]
